FAERS Safety Report 5311013-X (Version None)
Quarter: 2007Q2

REPORT INFORMATION
  Report Type: 
  Country: None (occurrence: None)
  Receive Date: 20070430
  Receipt Date: 20070417
  Transmission Date: 20071010
  Serious: Yes (Other)
  Sender: FDA-Public Use
  Company Number: NSADSS2002043300

PATIENT
  Age: 45 Year
  Sex: Female
  Weight: 78.47 kg

DRUGS (4)
  1. LEVAQUIN [Suspect]
     Route: 048
     Dates: start: 20021106
  2. INSULIN [Concomitant]
     Indication: DRUG USE FOR UNKNOWN INDICATION
     Route: 065
  3. PLAVIX [Concomitant]
     Indication: SURGERY
     Route: 065
  4. ASPIRIN [Concomitant]
     Indication: SURGERY
     Route: 065

REACTIONS (6)
  - BLOOD GLUCOSE DECREASED [None]
  - BLOOD GLUCOSE INCREASED [None]
  - BLOOD PRESSURE INCREASED [None]
  - FLUSHING [None]
  - PALPITATIONS [None]
  - TREMOR [None]
